FAERS Safety Report 4449853-1 (Version None)
Quarter: 2004Q3

REPORT INFORMATION
  Report Type: 
  Country: None (occurrence: None)
  Receive Date: 20040802
  Receipt Date: 20040407
  Transmission Date: 20050211
  Serious: No
  Sender: FDA-Public Use
  Company Number: 2004-114817-NL

PATIENT
  Age: 31 Year
  Sex: Female
  Weight: 54.5 kg

DRUGS (3)
  1. NUVARING [Suspect]
     Indication: CONTRACEPTION
     Dosage: DF DAILY VAGINAL
     Route: 067
     Dates: start: 20040317, end: 20040301
  2. ELITE SUN PROTECTION LOTION [Concomitant]
  3. MULTI-VITAMINS [Concomitant]

REACTIONS (1)
  - VAGINAL CONTRACEPTIVE DEVICE EXPELLED [None]
